FAERS Safety Report 14789190 (Version 1)
Quarter: 2018Q2

REPORT INFORMATION
  Report Type: Spontaneous
  Country: US (occurrence: US)
  Receive Date: 20180423
  Receipt Date: 20180423
  Transmission Date: 20180711
  Serious: Yes (Hospitalization)
  Sender: FDA-Public Use
  Company Number: PHEH2018US015264

PATIENT
  Age: 64 Year
  Sex: Female

DRUGS (1)
  1. VOTRIENT [Suspect]
     Active Substance: PAZOPANIB HYDROCHLORIDE
     Indication: RENAL NEOPLASM
     Dosage: 800 MG, QD
     Route: 048
     Dates: start: 20180327, end: 20180407

REACTIONS (5)
  - Rash [Unknown]
  - Liver disorder [Unknown]
  - Renal disorder [Unknown]
  - Hypersensitivity [Unknown]
  - Pyrexia [Unknown]

NARRATIVE: CASE EVENT DATE: 20180407
